FAERS Safety Report 20163920 (Version 6)
Quarter: 2022Q1

REPORT INFORMATION
  Report Type: Report from Study
  Country: MX (occurrence: MX)
  Receive Date: 20211209
  Receipt Date: 20220329
  Transmission Date: 20220424
  Serious: Yes (Other)
  Sender: FDA-Public Use
  Company Number: MX-NOVARTISPH-NVSC2021MX257702

PATIENT
  Sex: Female
  Weight: 80 kg

DRUGS (1)
  1. TASIGNA [Suspect]
     Active Substance: NILOTINIB
     Indication: Chronic myeloid leukaemia
     Dosage: UNK
     Route: 048
     Dates: start: 201612

REACTIONS (33)
  - Cataract [Unknown]
  - Visual impairment [Unknown]
  - Productive cough [Unknown]
  - Cough [Unknown]
  - Choking [Unknown]
  - Asphyxia [Unknown]
  - Pulmonary oedema [Unknown]
  - Pneumonia [Unknown]
  - Influenza [Unknown]
  - Decreased immune responsiveness [Unknown]
  - Hair disorder [Unknown]
  - Discharge [Unknown]
  - Oropharyngeal discomfort [Unknown]
  - Agitation [Unknown]
  - Increased appetite [Unknown]
  - Hypersensitivity [Unknown]
  - Rash [Unknown]
  - Abdominal discomfort [Unknown]
  - Alopecia [Unknown]
  - Oral candidiasis [Unknown]
  - Pollakiuria [Unknown]
  - Anxiety [Not Recovered/Not Resolved]
  - Taste disorder [Unknown]
  - Irritable bowel syndrome [Unknown]
  - Constipation [Unknown]
  - Large intestine infection [Unknown]
  - Discomfort [Unknown]
  - Food refusal [Unknown]
  - Gastritis [Unknown]
  - Malaise [Unknown]
  - Fatigue [Unknown]
  - Abdominal pain [Unknown]
  - Decreased appetite [Unknown]
